FAERS Safety Report 7549081-7 (Version None)
Quarter: 2011Q2

REPORT INFORMATION
  Report Type: 
  Country: None (occurrence: None)
  Receive Date: 20110525
  Receipt Date: 20110207
  Transmission Date: 20111010
  Serious: No
  Sender: FDA-Public Use
  Company Number: 322941

PATIENT
  Age: 70 Year
  Sex: Female

DRUGS (1)
  1. VICTOZA [Suspect]
     Indication: TYPE 2 DIABETES MELLITUS
     Dosage: 0.6 MG, QD, SUBCUTANEOUS
     Route: 058
     Dates: start: 20110131

REACTIONS (7)
  - MALAISE [None]
  - ERUCTATION [None]
  - DIARRHOEA [None]
  - NERVOUSNESS [None]
  - NAUSEA [None]
  - DYSGEUSIA [None]
  - VOMITING PROJECTILE [None]
